FAERS Safety Report 11532861 (Version 1)
Quarter: 2015Q3

REPORT INFORMATION
  Report Type: Other
  Country: DE (occurrence: DE)
  Receive Date: 20150921
  Receipt Date: 20150921
  Transmission Date: 20151125
  Serious: Yes (Life-Threatening, Hospitalization, Disabling)
  Sender: FDA-Public Use
  Company Number: DE-MYLANLABS-2015M1030739

PATIENT

DRUGS (2)
  1. PREDNISOLON [Suspect]
     Active Substance: PREDNISOLONE
     Indication: PULMONARY SARCOIDOSIS
     Dosage: 20 MG, UNK
     Route: 048
     Dates: start: 20111221, end: 20131223
  2. ZANTAC [Suspect]
     Active Substance: RANITIDINE HYDROCHLORIDE
     Indication: PULMONARY SARCOIDOSIS
     Dosage: 100 MG, QD (DAILY DOSE: 100 MG MILLGRAM(S) EVERY DAYS)
     Route: 048
     Dates: start: 20120118, end: 20131223

REACTIONS (2)
  - Leukoencephalopathy [Recovering/Resolving]
  - JC virus test positive [Unknown]

NARRATIVE: CASE EVENT DATE: 20131210
